FAERS Safety Report 9614569 (Version 1)
Quarter: 2013Q4

REPORT INFORMATION
  Report Type: Spontaneous
  Country: US (occurrence: None)
  Receive Date: 20131008
  Receipt Date: 20131008
  Transmission Date: 20140711
  Serious: Yes (Hospitalization, Other)
  Sender: FDA-Public Use
  Company Number: CO-OR-IR-2013-107

PATIENT
  Age: 47 Year
  Sex: Male

DRUGS (2)
  1. PREDNISOLONE [Suspect]
     Indication: GLOMERULONEPHRITIS RAPIDLY PROGRESSIVE
     Route: 048
  2. METHYLPREDNISOLONE (METHYLPREDNISOLONE) [Suspect]
     Indication: GLOMERULONEPHRITIS RAPIDLY PROGRESSIVE
     Route: 042

REACTIONS (3)
  - Hyperglycaemia [None]
  - Diabetic ketoacidosis [None]
  - Zygomycosis [None]
